FAERS Safety Report 4999414-0 (Version None)
Quarter: 2006Q2

REPORT INFORMATION
  Report Type: 
  Country: None (occurrence: None)
  Receive Date: 20060511
  Receipt Date: 20060124
  Transmission Date: 20061013
  Serious: Yes (Death)
  Sender: FDA-Public Use
  Company Number: JP-ROCHE-433735

PATIENT
  Age: 67 Year
  Sex: Female
  Weight: 48 kg

DRUGS (11)
  1. PEGASYS [Suspect]
     Indication: HEPATITIS C
     Route: 058
     Dates: start: 20050616, end: 20050712
  2. PEGASYS [Suspect]
     Route: 058
     Dates: start: 20050719, end: 20050725
  3. PEGASYS [Suspect]
     Route: 058
     Dates: start: 20050801, end: 20050822
  4. PEGASYS [Suspect]
     Route: 058
     Dates: start: 20050829, end: 20060116
  5. URSO [Concomitant]
     Route: 048
     Dates: start: 19990902, end: 20060116
  6. LAC-B [Concomitant]
     Route: 048
     Dates: start: 19990902, end: 20060116
  7. TAKEPRON [Concomitant]
     Route: 048
     Dates: start: 20020305, end: 20060116
  8. MEVALOTIN [Concomitant]
     Route: 048
     Dates: start: 20030109, end: 20060116
  9. GLIMICRON [Concomitant]
     Route: 048
     Dates: start: 20050112, end: 20060116
  10. MERCAZOLE [Concomitant]
     Route: 048
     Dates: start: 20051017, end: 20051031
  11. THYRADIN [Concomitant]
     Route: 048
     Dates: start: 20051205

REACTIONS (2)
  - CEREBRAL HAEMORRHAGE [None]
  - THYROID FUNCTION TEST ABNORMAL [None]
